FAERS Safety Report 18083577 (Version 1)
Quarter: 2020Q3

REPORT INFORMATION
  Report Type: Spontaneous
  Country: US (occurrence: US)
  Receive Date: 20200729
  Receipt Date: 20200729
  Transmission Date: 20201103
  Serious: No
  Sender: FDA-Public Use
  Company Number: US-SUN PHARMACEUTICAL INDUSTRIES LTD-2020R1-237832

PATIENT
  Age: 54 Year
  Sex: Male

DRUGS (1)
  1. TESTOSTERONE. [Suspect]
     Active Substance: TESTOSTERONE
     Indication: BLOOD TESTOSTERONE DECREASED
     Dosage: 1 MILLILITER, WEEKLY
     Route: 065
     Dates: start: 201910

REACTIONS (6)
  - Hot flush [Unknown]
  - Burning sensation [Unknown]
  - Skin depigmentation [Unknown]
  - Poor quality product administered [Unknown]
  - Product deposit [Unknown]
  - Paraesthesia [Unknown]

NARRATIVE: CASE EVENT DATE: 201910
